FAERS Safety Report 6055480-5 (Version None)
Quarter: 2009Q1

REPORT INFORMATION
  Report Type: 
  Country: None (occurrence: None)
  Receive Date: 20090128
  Receipt Date: 20090121
  Transmission Date: 20090719
  Serious: Yes (Death, Other)
  Sender: FDA-Public Use
  Company Number: US-CELGENEUS-163-21880-08101164

PATIENT
  Sex: Male

DRUGS (2)
  1. REVLIMID [Suspect]
     Indication: MYELODYSPLASTIC SYNDROME
     Route: 048
     Dates: start: 20080807, end: 20081016
  2. PROCRIT [Concomitant]
     Indication: MYELODYSPLASTIC SYNDROME
     Dosage: 60,000 UNITS
     Route: 065
     Dates: start: 20080828, end: 20081016

REACTIONS (5)
  - ANAEMIA [None]
  - CARDIAC ARREST [None]
  - MYOCARDIAL ISCHAEMIA [None]
  - RASH GENERALISED [None]
  - SUDDEN CARDIAC DEATH [None]
